FAERS Safety Report 12173902 (Version 1)
Quarter: 2016Q1

REPORT INFORMATION
  Report Type: Spontaneous
  Country: None (occurrence: None)
  Receive Date: 20160311
  Receipt Date: 20160311
  Transmission Date: 20160526
  Serious: Yes (Disabling)
  Sender: FDA-Public Use
  Company Number: None

PATIENT
  Age: 26 Year
  Sex: Female
  Weight: 47.63 kg

DRUGS (1)
  1. SKYLA [Suspect]
     Active Substance: LEVONORGESTREL

REACTIONS (6)
  - Haemorrhage [None]
  - Weight increased [None]
  - Muscle spasms [None]
  - Procedural pain [None]
  - Urinary tract infection [None]
  - Libido decreased [None]

NARRATIVE: CASE EVENT DATE: 20150708
